FAERS Safety Report 10187901 (Version 1)
Quarter: 2014Q2

REPORT INFORMATION
  Report Type: Spontaneous
  Country: IT (occurrence: None)
  Receive Date: 20140520
  Receipt Date: 20140520
  Transmission Date: 20141212
  Serious: Yes (Hospitalization)
  Sender: FDA-Public Use
  Company Number: 2014AP002960

PATIENT
  Age: 81 Year
  Sex: Female

DRUGS (4)
  1. CLARITHROMYCIN [Suspect]
     Indication: INFECTION
     Route: 048
     Dates: start: 20131028, end: 20131028
  2. CARDIOASPIRIN (ACETYLSALICYLIC ACID) [Concomitant]
  3. ALMARYTM (FLECAINIDE ACETATE) [Concomitant]
  4. RAMIPRIL + HIDROCLOROTIAZIDA (HYDROCHLOROTHIAZIDE, RAMIPRIL) [Concomitant]

REACTIONS (1)
  - Lip oedema [None]
